FAERS Safety Report 11050675 (Version 1)
Quarter: 2015Q2

REPORT INFORMATION
  Report Type: Spontaneous
  Country: US (occurrence: US)
  Receive Date: 20150421
  Receipt Date: 20150421
  Transmission Date: 20150821
  Serious: No
  Sender: FDA-Public Use
  Company Number: US-LEO PHARMA-233020

PATIENT
  Age: 65 Year
  Sex: Male

DRUGS (1)
  1. PICATO [Suspect]
     Active Substance: INGENOL MEBUTATE
     Indication: PRECANCEROUS SKIN LESION
     Route: 061
     Dates: start: 20150226

REACTIONS (6)
  - Incorrect product storage [Unknown]
  - Product packaging quantity issue [Unknown]
  - Multiple use of single-use product [Unknown]
  - Application site pain [Not Recovered/Not Resolved]
  - Application site erosion [Not Recovered/Not Resolved]
  - Product container seal issue [Unknown]

NARRATIVE: CASE EVENT DATE: 20150227
